FAERS Safety Report 20881497 (Version 2)
Quarter: 2022Q2

REPORT INFORMATION
  Report Type: Report from Study
  Country: AU (occurrence: AU)
  Receive Date: 20220526
  Receipt Date: 20220601
  Transmission Date: 20220721
  Serious: Yes (Other)
  Sender: FDA-Public Use
  Company Number: AU-JNJFOC-20220535470

PATIENT
  Age: 64 Year
  Sex: Male

DRUGS (6)
  1. IMBRUVICA [Suspect]
     Active Substance: IBRUTINIB
     Indication: Chronic lymphocytic leukaemia
     Route: 048
     Dates: start: 20170601
  2. GABAPENTIN [Concomitant]
     Active Substance: GABAPENTIN
     Indication: Neuralgia
     Route: 048
  3. BLACKMORES DIGESTIVES COLON CARE [Concomitant]
     Indication: Gastrooesophageal reflux disease
     Route: 048
  4. INTRAGAM P [Concomitant]
     Active Substance: HUMAN IMMUNOGLOBULIN G
     Indication: Immune enhancement therapy
     Route: 041
  5. NEXIUM [Concomitant]
     Active Substance: ESOMEPRAZOLE MAGNESIUM
     Indication: Product used for unknown indication
  6. INFLUENZA VIRUS VACCINE [Concomitant]
     Active Substance: INFLUENZA VIRUS VACCINE
     Indication: Product used for unknown indication
     Dates: start: 20220421

REACTIONS (6)
  - Immunosuppression [Not Recovered/Not Resolved]
  - Herpes zoster [Recovering/Resolving]
  - Lactose intolerance [Unknown]
  - Gastrooesophageal reflux disease [Recovering/Resolving]
  - Malaise [Unknown]
  - Onychoclasis [Unknown]

NARRATIVE: CASE EVENT DATE: 20201001
